FAERS Safety Report 24832846 (Version 1)
Quarter: 2025Q1

REPORT INFORMATION
  Report Type: Spontaneous
  Country: IN (occurrence: IN)
  Receive Date: 20250110
  Receipt Date: 20250110
  Transmission Date: 20250409
  Serious: Yes (Death, Other)
  Sender: ROCHE
  Company Number: IN-ROCHE-10000125870

PATIENT
  Age: 70 Year
  Sex: Female

DRUGS (1)
  1. TECENTRIQ [Suspect]
     Active Substance: ATEZOLIZUMAB
     Indication: Mesothelioma
     Route: 042
     Dates: start: 20240301

REACTIONS (2)
  - Malaise [Unknown]
  - Death [Fatal]

NARRATIVE: CASE EVENT DATE: 20241221
